FAERS Safety Report 8368969-0 (Version None)
Quarter: 2012Q2

REPORT INFORMATION
  Report Type: 
  Country: None (occurrence: None)
  Receive Date: 20120518
  Receipt Date: 20120514
  Transmission Date: 20120825
  Serious: No
  Sender: FDA-Public Use
  Company Number: US-PFIZER INC-2012117238

PATIENT
  Sex: Female
  Weight: 62.585 kg

DRUGS (2)
  1. FLECTOR [Suspect]
     Indication: BACK DISORDER
     Dosage: UNK
     Route: 062
     Dates: start: 20120512
  2. MOTRIN [Concomitant]
     Indication: ARTHRITIS
     Dosage: 200 MG, TWO TIMES A WEEK AS NEEDED

REACTIONS (1)
  - DRUG INEFFECTIVE [None]
